FAERS Safety Report 5256297-1 (Version None)
Quarter: 2007Q1

REPORT INFORMATION
  Report Type: 
  Country: None (occurrence: None)
  Receive Date: 20061204
  Receipt Date: 20060922
  Transmission Date: 20070707
  Serious: No
  Sender: FDA-Public Use
  Company Number: 2006-BP-09719BP

PATIENT
  Age: 70 Year
  Sex: Female

DRUGS (8)
  1. SPIRIVA [Suspect]
     Indication: CHRONIC OBSTRUCTIVE PULMONARY DISEASE
     Dosage: 18 MCG (18 MCG, 1 IN 1 D) IH
     Route: 055
     Dates: start: 20060817, end: 20060820
  2. SPIRIVA [Suspect]
     Indication: CHRONIC OBSTRUCTIVE PULMONARY DISEASE
     Dosage: 18 MCG (18 MCG, 1 IN 1 D) IH
     Route: 055
     Dates: start: 20060901
  3. FLONASE (FLUTICASONE PROPRIONATE) [Concomitant]
  4. SINGULAIR (MONTEKULAST) [Concomitant]
  5. PROZAC [Concomitant]
  6. LOVASTATIN [Concomitant]
  7. L-THYROXINE (LEVOTHYROXINE) [Concomitant]
  8. TRAZODONE HCL [Concomitant]

REACTIONS (1)
  - PSYCHOMOTOR HYPERACTIVITY [None]
